FAERS Safety Report 4363659-3 (Version None)
Quarter: 2004Q2

REPORT INFORMATION
  Report Type: 
  Country: None (occurrence: None)
  Receive Date: 20040524
  Receipt Date: 20040524
  Transmission Date: 20050107
  Serious: Yes (Other)
  Sender: FDA-Public Use
  Company Number: None

PATIENT
  Age: 81 Year
  Sex: Female
  Weight: 90.7194 kg

DRUGS (2)
  1. DURAGESIC [Suspect]
     Indication: PAIN
     Dosage: 75 MCG EVERY 72 H TRANSDERMAL
     Route: 062
     Dates: start: 20040125, end: 20040522
  2. DURAGESIC [Suspect]
     Indication: PLASMACYTOMA
     Dosage: 75 MCG EVERY 72 H TRANSDERMAL
     Route: 062
     Dates: start: 20040125, end: 20040522

REACTIONS (13)
  - ANXIETY [None]
  - BACK PAIN [None]
  - CHEST WALL PAIN [None]
  - CHILLS [None]
  - DRUG WITHDRAWAL SYNDROME [None]
  - HYPERHIDROSIS [None]
  - MULTIPLE MYELOMA [None]
  - NAUSEA [None]
  - PAIN EXACERBATED [None]
  - PHARMACEUTICAL PRODUCT COMPLAINT [None]
  - RESTLESSNESS [None]
  - TREMOR [None]
  - VOMITING [None]
